FAERS Safety Report 10482063 (Version 1)
Quarter: 2014Q3

REPORT INFORMATION
  Report Type: Spontaneous
  Country: US (occurrence: US)
  Receive Date: 20140929
  Receipt Date: 20140929
  Transmission Date: 20150326
  Serious: No
  Sender: FDA-Public Use
  Company Number: US-PFIZER INC-2014267918

PATIENT
  Age: 27 Year
  Sex: Male
  Weight: 83.9 kg

DRUGS (2)
  1. CLARITIN [Concomitant]
     Active Substance: LORATADINE
     Indication: PHARYNGEAL MASS
     Dosage: UNK
  2. CHANTIX [Suspect]
     Active Substance: VARENICLINE TARTRATE
     Indication: SMOKING CESSATION THERAPY
     Dosage: 1 DF, UNK
     Dates: start: 20140925

REACTIONS (9)
  - Limb discomfort [Recovered/Resolved]
  - Dizziness [Unknown]
  - Hyperventilation [Unknown]
  - Paraesthesia oral [Recovered/Resolved]
  - Asthenia [Unknown]
  - Pain in jaw [Not Recovered/Not Resolved]
  - Paraesthesia [Unknown]
  - Jaw disorder [Unknown]
  - Feeling abnormal [Unknown]

NARRATIVE: CASE EVENT DATE: 20140926
